FAERS Safety Report 6239359-1 (Version None)
Quarter: 2009Q2

REPORT INFORMATION
  Report Type: 
  Country: None (occurrence: None)
  Receive Date: 20090618
  Receipt Date: 20090618
  Transmission Date: 20091009
  Serious: No
  Sender: FDA-Public Use
  Company Number: None

PATIENT
  Sex: Female
  Weight: 68.0396 kg

DRUGS (1)
  1. ZICAM GEL NASEL SPRAY MATRIXX [Suspect]
     Indication: NASOPHARYNGITIS
     Dosage: 1 SPRAY IN EACH NOSTRIL 2 TIMES A DAY NASAL (DURATION: A WEEK)
     Route: 045

REACTIONS (2)
  - AGEUSIA [None]
  - ANOSMIA [None]
